FAERS Safety Report 4428836-1 (Version None)
Quarter: 2004Q3

REPORT INFORMATION
  Report Type: 
  Country: None (occurrence: None)
  Receive Date: 20040818
  Receipt Date: 20040809
  Transmission Date: 20050211
  Serious: Yes (Hospitalization, Other)
  Sender: FDA-Public Use
  Company Number: 376424

PATIENT
  Sex: Male

DRUGS (2)
  1. DILATREND [Suspect]
     Route: 048
     Dates: start: 20021215, end: 20040517
  2. VERAPAMIL [Concomitant]

REACTIONS (3)
  - BRADYCARDIA [None]
  - CARDIAC ARREST [None]
  - LOSS OF CONSCIOUSNESS [None]
